FAERS Safety Report 7086938-8 (Version None)
Quarter: 2010Q4

REPORT INFORMATION
  Report Type: 
  Country: None (occurrence: None)
  Receive Date: 20101106
  Receipt Date: 20101026
  Transmission Date: 20110411
  Serious: No
  Sender: FDA-Public Use
  Company Number: US-WYE-H17365510

PATIENT
  Sex: Female
  Weight: 134.84 kg

DRUGS (6)
  1. EFFEXOR XR [Suspect]
     Indication: DEPRESSION
     Dates: start: 20100813, end: 20100815
  2. EFFEXOR XR [Suspect]
     Dates: start: 20100816, end: 20100901
  3. EFFEXOR XR [Suspect]
     Dates: start: 20100902
  4. INSULIN [Concomitant]
  5. ASPIRIN [Concomitant]
  6. GLUCOPHAGE [Concomitant]

REACTIONS (10)
  - ABDOMINAL DISCOMFORT [None]
  - ASTHENIA [None]
  - BLOOD GLUCOSE DECREASED [None]
  - CARDIAC FLUTTER [None]
  - DECREASED APPETITE [None]
  - HEADACHE [None]
  - MALAISE [None]
  - MYDRIASIS [None]
  - PHOTOPHOBIA [None]
  - TREMOR [None]
